FAERS Safety Report 9902890 (Version 1)
Quarter: 2014Q1

REPORT INFORMATION
  Report Type: Spontaneous
  Country: FR (occurrence: FR)
  Receive Date: 20140217
  Receipt Date: 20140217
  Transmission Date: 20141002
  Serious: Yes (Hospitalization)
  Sender: FDA-Public Use
  Company Number: PHHY2014FR017505

PATIENT
  Age: 65 Year
  Sex: Female

DRUGS (4)
  1. FEMARA [Suspect]
     Indication: BREAST CANCER
     Dosage: 2.5 MG
     Route: 048
     Dates: start: 20090802
  2. EPIRUBICIN [Suspect]
     Indication: BREAST CANCER
     Dosage: UNK UKN, UNK
     Dates: start: 2006
  3. TAXOTERE [Suspect]
     Indication: BREAST CANCER
     Dosage: 160 MG/ 8 ML
     Dates: start: 2006
  4. CYCLOPHOSPHAMIDE [Suspect]
     Indication: BREAST CANCER
     Dosage: UNK UKN, UNK
     Dates: start: 2006

REACTIONS (1)
  - Neuropathy peripheral [Not Recovered/Not Resolved]
